FAERS Safety Report 7536451-6 (Version None)
Quarter: 2011Q2

REPORT INFORMATION
  Report Type: 
  Country: None (occurrence: None)
  Receive Date: 20110609
  Receipt Date: 20090418
  Transmission Date: 20111010
  Serious: Yes (Other)
  Sender: FDA-Public Use
  Company Number: US-BAYER-200918536NA

PATIENT
  Age: 57 Year
  Sex: Male
  Weight: 81.7 kg

DRUGS (18)
  1. PLASMA [Concomitant]
     Dosage: 4 U, ONCE
     Route: 042
     Dates: start: 20060106
  2. PLATELETS [Concomitant]
     Dosage: 1 U, ONCE
     Route: 042
     Dates: start: 20060106
  3. VANCOMYCIN [Concomitant]
     Dosage: UNK
     Dates: start: 20060112
  4. NATRECOR [Concomitant]
  5. VERSED [Concomitant]
     Dosage: UNK
     Route: 042
     Dates: start: 20060106, end: 20060106
  6. TRASYLOL [Suspect]
     Indication: CORONARY ARTERY BYPASS
     Dosage: 1 ML INITIAL TEST DOSE
     Route: 042
     Dates: start: 20060106, end: 20060106
  7. TRASYLOL [Suspect]
     Dosage: 200 ML LOADING DOSE FOLLOWED BY 50 ML/HOUR INFUSION
     Route: 042
     Dates: start: 20060106, end: 20060106
  8. DOBUTAMINE HYDROCHLORIDE [Concomitant]
     Dosage: UNK
     Route: 042
     Dates: start: 20060106
  9. ACETYLSALICYLIC ACID SRT [Concomitant]
     Dosage: 325 MG, QD
     Route: 048
     Dates: start: 20050523, end: 20060101
  10. SOLU-CORTEF [Concomitant]
     Dosage: 500 MG
     Route: 042
     Dates: start: 20060106, end: 20060106
  11. HEPARIN [Concomitant]
     Dosage: 24,000 UNITS
     Route: 042
     Dates: start: 20060106
  12. AMIODARONE HCL [Concomitant]
     Route: 042
  13. LIPITOR [Concomitant]
     Dosage: 40 MG, QD
     Route: 048
     Dates: start: 20050523, end: 20060101
  14. NEOSYNEPHRINE [Concomitant]
     Dosage: UNK
     Route: 042
     Dates: start: 20060106
  15. DOPAMINE HCL [Concomitant]
     Dosage: UNK
     Dates: start: 20060112
  16. METOPROLOL TARTRATE [Concomitant]
     Dosage: 50 MG, BID
     Route: 048
     Dates: start: 20050523, end: 20060101
  17. LISINOPRIL [Concomitant]
     Indication: BLOOD PRESSURE MANAGEMENT
     Dosage: 20 MG, BID
     Route: 048
     Dates: start: 20050523, end: 20060101
  18. FENTANYL [Concomitant]
     Dosage: UNK
     Route: 042
     Dates: start: 20060106, end: 20060106

REACTIONS (14)
  - UNEVALUABLE EVENT [None]
  - CHEST PAIN [None]
  - INJURY [None]
  - EMOTIONAL DISTRESS [None]
  - ANXIETY [None]
  - FEAR [None]
  - PAIN [None]
  - ANHEDONIA [None]
  - CARDIAC FAILURE [None]
  - STRESS [None]
  - RENAL FAILURE [None]
  - RENAL INJURY [None]
  - DYSPNOEA [None]
  - RENAL IMPAIRMENT [None]
